FAERS Safety Report 15681814 (Version 1)
Quarter: 2018Q4

REPORT INFORMATION
  Report Type: Spontaneous
  Country: IN (occurrence: IN)
  Receive Date: 20181203
  Receipt Date: 20181203
  Transmission Date: 20190205
  Serious: Yes (Other)
  Sender: FDA-Public Use
  Company Number: IN-INGENUS PHARMACEUTICALS, LLC-INF201811-001092

PATIENT
  Age: 54 Year
  Sex: Female

DRUGS (4)
  1. CARBOPLATIN. [Suspect]
     Active Substance: CARBOPLATIN
     Indication: ADENOCARCINOMA OF THE CERVIX
  2. CARBOPLATIN. [Suspect]
     Active Substance: CARBOPLATIN
  3. PACLITAXEL. [Suspect]
     Active Substance: PACLITAXEL
     Indication: ADENOCARCINOMA OF THE CERVIX
  4. PACLITAXEL. [Suspect]
     Active Substance: PACLITAXEL

REACTIONS (9)
  - Nerve injury [Unknown]
  - Vocal cord paralysis [Not Recovered/Not Resolved]
  - Aspiration [Unknown]
  - Muscular weakness [Unknown]
  - Dysgeusia [Unknown]
  - Dysphonia [Recovering/Resolving]
  - Nausea [Unknown]
  - Dysentery [Unknown]
  - Cough [Unknown]
